FAERS Safety Report 6247673-9 (Version None)
Quarter: 2009Q2

REPORT INFORMATION
  Report Type: 
  Country: None (occurrence: None)
  Receive Date: 20090626
  Receipt Date: 20090615
  Transmission Date: 20091009
  Serious: No
  Sender: FDA-Public Use
  Company Number: GB-ELI_LILLY_AND_COMPANY-GB200903007561

PATIENT
  Sex: Male
  Weight: 55.1 kg

DRUGS (2)
  1. STRATTERA [Suspect]
     Indication: ATTENTION DEFICIT/HYPERACTIVITY DISORDER
     Dosage: 78 MG, DAILY (1/D)
     Route: 048
     Dates: start: 20071101
  2. STRATTERA [Suspect]
     Dosage: 72 MG, DAILY (1/D)
     Route: 048

REACTIONS (3)
  - CYANOSIS [None]
  - MUSCULOSKELETAL STIFFNESS [None]
  - PERIPHERAL COLDNESS [None]
